FAERS Safety Report 15169296 (Version 1)
Quarter: 2018Q3

REPORT INFORMATION
  Report Type: Spontaneous
  Country: ES (occurrence: ES)
  Receive Date: 20180720
  Receipt Date: 20180720
  Transmission Date: 20181010
  Serious: Yes (Other)
  Sender: FDA-Public Use
  Company Number: ES-SUN PHARMACEUTICAL INDUSTRIES LTD-2018RR-178871

PATIENT
  Age: 30 Year
  Sex: Female

DRUGS (4)
  1. METRONIDAZOL (1966A) [Concomitant]
     Active Substance: METRONIDAZOLE
     Indication: PEPTIC ULCER HELICOBACTER
     Dosage: ()
     Route: 048
     Dates: start: 201804, end: 201804
  2. CLARITHROMYCIN. [Suspect]
     Active Substance: CLARITHROMYCIN
     Indication: PEPTIC ULCER HELICOBACTER
     Dosage: ()
     Route: 048
     Dates: start: 201804, end: 201804
  3. AMOXICILLIN. [Suspect]
     Active Substance: AMOXICILLIN
     Indication: PEPTIC ULCER HELICOBACTER
     Dosage: ()
     Route: 048
     Dates: start: 201804, end: 201804
  4. OMEPRAZOL (2141A) [Concomitant]
     Active Substance: OMEPRAZOLE
     Indication: PEPTIC ULCER HELICOBACTER
     Dosage: ()
     Route: 048
     Dates: start: 201804, end: 201804

REACTIONS (5)
  - Diarrhoea [Unknown]
  - Headache [Unknown]
  - Malaise [Unknown]
  - Asthenia [Unknown]
  - Sensory loss [Unknown]

NARRATIVE: CASE EVENT DATE: 201804
